FAERS Safety Report 9341252 (Version 1)
Quarter: 2013Q2

REPORT INFORMATION
  Report Type: Report from Study
  Country: US (occurrence: US)
  Receive Date: 20130611
  Receipt Date: 20130611
  Transmission Date: 20140414
  Serious: Yes (Hospitalization)
  Sender: FDA-Public Use
  Company Number: US-ROCHE-1234496

PATIENT
  Age: 47 Year
  Sex: Female
  Weight: 77.18 kg

DRUGS (13)
  1. ACTEMRA [Suspect]
     Indication: RHEUMATOID ARTHRITIS
     Dosage: 4MGLKG
     Route: 042
     Dates: start: 20130411
  2. ACTEMRA [Suspect]
     Route: 042
     Dates: start: 20130509
  3. ACTEMRA [Suspect]
     Route: 042
     Dates: start: 20130606
  4. RITUXAN [Suspect]
     Indication: RHEUMATOID ARTHRITIS
     Dosage: DISCONTINUED BEFORE /NOV/2009
     Route: 042
     Dates: start: 200706
  5. RITUXAN [Suspect]
     Route: 042
     Dates: start: 200909, end: 200911
  6. METHOTREXATE [Concomitant]
     Indication: RHEUMATOID ARTHRITIS
     Route: 065
  7. TOPROL [Concomitant]
     Indication: HYPERTENSION
     Route: 065
  8. PREDNISONE [Concomitant]
     Indication: RHEUMATOID ARTHRITIS
     Route: 065
  9. ZOCOR [Concomitant]
     Route: 065
  10. CELEBREX [Concomitant]
     Route: 065
  11. FOLIC ACID [Concomitant]
     Route: 065
  12. OMEGA 3 [Concomitant]
     Route: 065
  13. ORENCIA [Concomitant]
     Dosage: START DATE BEFORE /NOV/2009
     Route: 065

REACTIONS (3)
  - Chest pain [Recovered/Resolved]
  - Headache [Recovered/Resolved]
  - Therapeutic response decreased [Unknown]
